FAERS Safety Report 5041382-X (Version None)
Quarter: 2006Q2

REPORT INFORMATION
  Report Type: 
  Country: None (occurrence: None)
  Receive Date: 20060628
  Receipt Date: 20060621
  Transmission Date: 20061013
  Serious: No
  Sender: FDA-Public Use
  Company Number: FR-2006-016370

PATIENT
  Age: 48 Year
  Sex: Female

DRUGS (1)
  1. MIRENA [Suspect]
     Dosage: 20 UG/DAY, CONT, INTRA-UTERINE
     Route: 015

REACTIONS (5)
  - DEVICE BREAKAGE [None]
  - DEVICE MIGRATION [None]
  - ENDOMETRIAL DISORDER [None]
  - IUCD COMPLICATION [None]
  - PAIN [None]
